FAERS Safety Report 18785491 (Version 2)
Quarter: 2022Q3

REPORT INFORMATION
  Report Type: Report from Study
  Country: TW (occurrence: TW)
  Receive Date: 20210125
  Receipt Date: 20220709
  Transmission Date: 20221026
  Serious: Yes (Hospitalization)
  Sender: FDA-Public Use
  Company Number: TW-BAYER-2020-286583

PATIENT
  Age: 80 Year
  Sex: Male

DRUGS (1)
  1. RIVAROXABAN [Suspect]
     Active Substance: RIVAROXABAN
     Indication: Atrial fibrillation
     Dosage: 10 MG, QD
     Route: 048
     Dates: start: 20200922

REACTIONS (4)
  - Mass [Recovered/Resolved]
  - Nasal cavity mass [Recovered/Resolved]
  - Cerebral infarction [Recovered/Resolved]
  - Cerebral artery occlusion [Recovered/Resolved]

NARRATIVE: CASE EVENT DATE: 20201227
